FAERS Safety Report 24987530 (Version 1)
Quarter: 2025Q1

REPORT INFORMATION
  Report Type: Spontaneous
  Country: GB (occurrence: GB)
  Receive Date: 20250219
  Receipt Date: 20250219
  Transmission Date: 20250408
  Serious: Yes (Hospitalization, Other)
  Sender: PFIZER
  Company Number: None

PATIENT
  Age: 10 Year
  Sex: Male

DRUGS (7)
  1. LORLATINIB [Suspect]
     Active Substance: LORLATINIB
     Indication: Neuroblastoma
     Dates: start: 20240212, end: 20240903
  2. IRINOTECAN [Concomitant]
     Active Substance: IRINOTECAN
     Dates: start: 20240212
  3. TEMOZOLOMIDE [Concomitant]
     Active Substance: TEMOZOLOMIDE
     Dates: start: 20240212
  4. COTRIMOXAZOLE [Concomitant]
     Active Substance: SULFAMETHOXAZOLE\TRIMETHOPRIM
  5. DOCUSATE [Concomitant]
     Active Substance: DOCUSATE
  6. LEVOMEPROMAZINE [Concomitant]
     Active Substance: LEVOMEPROMAZINE
  7. CEFIXIME [Concomitant]
     Active Substance: CEFIXIME

REACTIONS (3)
  - Enterobacter sepsis [Recovered/Resolved]
  - Diplopia [Unknown]
  - Off label use [Unknown]

NARRATIVE: CASE EVENT DATE: 20240212
